FAERS Safety Report 24322094 (Version 1)
Quarter: 2024Q3

REPORT INFORMATION
  Report Type: Report from Study
  Country: TR (occurrence: TR)
  Receive Date: 20240916
  Receipt Date: 20240916
  Transmission Date: 20241016
  Serious: Yes (Hospitalization)
  Sender: SANOFI AVENTIS
  Company Number: TR-SAKK-2018SA156072AA

PATIENT
  Age: 57 Year
  Sex: Female
  Weight: 62 kg

DRUGS (5)
  1. INSULIN GLARGINE [Suspect]
     Active Substance: INSULIN GLARGINE
     Indication: Blood insulin
     Dosage: 16 DF
     Route: 058
     Dates: start: 20180521, end: 20180525
  2. HUMALOG [Suspect]
     Active Substance: INSULIN LISPRO
     Indication: Blood insulin
     Dosage: 3X8 UNITS
     Route: 058
     Dates: start: 20180521, end: 20180525
  3. METFORMIN HYDROCHLORIDE [Concomitant]
     Active Substance: METFORMIN HYDROCHLORIDE
     Dosage: 2X1, QD
     Route: 048
     Dates: start: 2002
  4. DIAMICRON [Concomitant]
     Dosage: 1X1, QD
     Route: 048
     Dates: start: 20180521
  5. ONGLYZA [Concomitant]
     Active Substance: SAXAGLIPTIN HYDROCHLORIDE
     Dosage: 1X1, QD
     Route: 048
     Dates: start: 2013

REACTIONS (3)
  - Abdominal pain [Recovered/Resolved]
  - Abdominal distension [Recovered/Resolved]
  - Blood glucose decreased [Recovered/Resolved]

NARRATIVE: CASE EVENT DATE: 20180525
